FAERS Safety Report 17064567 (Version 2)
Quarter: 2019Q4

REPORT INFORMATION
  Report Type: Spontaneous
  Country: GB (occurrence: GB)
  Receive Date: 20191122
  Receipt Date: 20191126
  Transmission Date: 20200122
  Serious: Yes (Other)
  Sender: FDA-Public Use
  Company Number: GB-IPSEN BIOPHARMACEUTICALS, INC.-2019-22721

PATIENT
  Age: 52 Year
  Sex: Female

DRUGS (3)
  1. METFORMIN [Concomitant]
     Active Substance: METFORMIN HYDROCHLORIDE
  2. SOMATULINE AUTOGEL [Suspect]
     Active Substance: LANREOTIDE ACETATE
     Route: 065
  3. SOMATULINE AUTOGEL [Suspect]
     Active Substance: LANREOTIDE ACETATE
     Indication: NEUROENDOCRINE TUMOUR
     Route: 065
     Dates: start: 2017

REACTIONS (12)
  - Liver disorder [Unknown]
  - Dysarthria [Unknown]
  - Product dose omission [Unknown]
  - Balance disorder [Unknown]
  - Diarrhoea [Not Recovered/Not Resolved]
  - Feeling drunk [Unknown]
  - Blood glucose fluctuation [Unknown]
  - Fatigue [Unknown]
  - Off label use [Unknown]
  - Pancreatic disorder [Unknown]
  - Asthenia [Unknown]
  - Dizziness [Unknown]

NARRATIVE: CASE EVENT DATE: 2017
